FAERS Safety Report 6025276-9 (Version None)
Quarter: 2008Q4

REPORT INFORMATION
  Report Type: 
  Country: None (occurrence: None)
  Receive Date: 20081231
  Receipt Date: 20081219
  Transmission Date: 20090506
  Serious: Yes (Other)
  Sender: FDA-Public Use
  Company Number: PHHY2008FR32506

PATIENT
  Age: 64 Year
  Sex: Female

DRUGS (3)
  1. CARTEOLOL HYDROCHLORIDE [Suspect]
     Indication: GLAUCOMA
     Dosage: 1 GTT, DAILY DOSE
     Route: 047
  2. XALATAN [Concomitant]
     Route: 047
  3. LATANOPROST [Concomitant]

REACTIONS (2)
  - CONDITION AGGRAVATED [None]
  - SYSTEMIC LUPUS ERYTHEMATOSUS [None]
